FAERS Safety Report 7032591-9 (Version None)
Quarter: 2010Q4

REPORT INFORMATION
  Report Type: 
  Country: None (occurrence: None)
  Receive Date: 20101007
  Receipt Date: 20100929
  Transmission Date: 20110411
  Serious: Yes (Other)
  Sender: FDA-Public Use
  Company Number: BR-ROCHE-715937

PATIENT
  Sex: Male
  Weight: 81 kg

DRUGS (2)
  1. PEGINTERFERON ALFA-2A [Suspect]
     Indication: HEPATITIS C
     Route: 058
     Dates: start: 20091019
  2. RIBAVIRIN [Concomitant]
     Dosage: DOSE: 1000 MG

REACTIONS (13)
  - ABDOMINAL PAIN [None]
  - ASTHENIA [None]
  - BLOOD IRON INCREASED [None]
  - BLOOD PRESSURE ABNORMAL [None]
  - BONE PAIN [None]
  - CHEST PAIN [None]
  - DYSPNOEA [None]
  - FATIGUE [None]
  - IMMUNODEFICIENCY [None]
  - INSOMNIA [None]
  - PAIN [None]
  - PRURITUS [None]
  - SERUM FERRITIN INCREASED [None]
